FAERS Safety Report 7802872-7 (Version None)
Quarter: 2011Q4

REPORT INFORMATION
  Report Type: 
  Country: None (occurrence: None)
  Receive Date: 20111007
  Receipt Date: 20110616
  Transmission Date: 20120403
  Serious: No
  Sender: FDA-Public Use
  Company Number: US-MUTUAL PHARMACEUTICAL COMPANY, INC.-QLQN20110003

PATIENT
  Sex: Female
  Weight: 54.48 kg

DRUGS (2)
  1. QUALAQUIN [Suspect]
     Indication: ROCKY MOUNTAIN SPOTTED FEVER
     Route: 048
     Dates: start: 20110616, end: 20110616
  2. CLINDAMYCIN [Suspect]
     Indication: ROCKY MOUNTAIN SPOTTED FEVER
     Route: 048
     Dates: start: 20110616, end: 20110616

REACTIONS (2)
  - OFF LABEL USE [None]
  - HEARING IMPAIRED [None]
